FAERS Safety Report 21800609 (Version 4)
Quarter: 2023Q1

REPORT INFORMATION
  Report Type: Spontaneous
  Country: US (occurrence: US)
  Receive Date: 20221230
  Receipt Date: 20230316
  Transmission Date: 20230417
  Serious: No
  Sender: FDA-Public Use
  Company Number: US-JNJFOC-20221262930

PATIENT
  Sex: Female

DRUGS (4)
  1. UPTRAVI [Suspect]
     Active Substance: SELEXIPAG
     Indication: Pulmonary hypertension
     Route: 048
  2. AMBRISENTAN [Suspect]
     Active Substance: AMBRISENTAN
     Indication: Pulmonary hypertension
     Route: 048
     Dates: start: 20201009
  3. AMBRISENTAN [Suspect]
     Active Substance: AMBRISENTAN
     Route: 048
  4. ADCIRCA [Concomitant]
     Active Substance: TADALAFIL

REACTIONS (11)
  - Nausea [Unknown]
  - Vomiting [Unknown]
  - Migraine [Unknown]
  - Musculoskeletal stiffness [Unknown]
  - Influenza [Unknown]
  - Headache [Unknown]
  - Pain in jaw [Unknown]
  - Dizziness postural [Unknown]
  - Urticaria [Unknown]
  - Trismus [Unknown]
  - Oral pain [Unknown]
